FAERS Safety Report 23742647 (Version 1)
Quarter: 2024Q2

REPORT INFORMATION
  Report Type: Spontaneous
  Country: US (occurrence: US)
  Receive Date: 20240415
  Receipt Date: 20240415
  Transmission Date: 20240716
  Serious: Yes (Other)
  Sender: FDA-Public Use
  Company Number: US-FreseniusKabi-FK202405852

PATIENT
  Age: 67 Year
  Sex: Female
  Weight: 57.6 kg

DRUGS (2)
  1. XYLOCAINE WITH EPINEPHRINE [Suspect]
     Active Substance: EPINEPHRINE BITARTRATE\LIDOCAINE HYDROCHLORIDE
     Indication: Pain
     Dosage: FORM OF ADMIN: INJECTION INSIDE NOSE
     Dates: start: 20240402, end: 20240402
  2. XYLOCAINE WITH EPINEPHRINE [Suspect]
     Active Substance: EPINEPHRINE BITARTRATE\LIDOCAINE HYDROCHLORIDE
     Indication: Haemorrhage

REACTIONS (3)
  - Heart rate increased [Recovered/Resolved]
  - Blood pressure systolic increased [Recovered/Resolved]
  - Off label use [Unknown]

NARRATIVE: CASE EVENT DATE: 20240402
